FAERS Safety Report 9473172 (Version 1)
Quarter: 2013Q3

REPORT INFORMATION
  Report Type: Spontaneous
  Country: US (occurrence: US)
  Receive Date: 20130823
  Receipt Date: 20130823
  Transmission Date: 20140515
  Serious: No
  Sender: FDA-Public Use
  Company Number: US-BRISTOL-MYERS SQUIBB COMPANY-18714279

PATIENT
  Age: 62 Year
  Sex: Female
  Weight: 101.13 kg

DRUGS (1)
  1. SPRYCEL [Suspect]
     Indication: CHRONIC MYELOID LEUKAEMIA
     Dates: start: 201303

REACTIONS (3)
  - Cough [Unknown]
  - Nasopharyngitis [Unknown]
  - Constipation [Unknown]
